FAERS Safety Report 14258613 (Version 1)
Quarter: 2017Q4

REPORT INFORMATION
  Report Type: Spontaneous
  Country: CN (occurrence: CN)
  Receive Date: 20171207
  Receipt Date: 20171207
  Transmission Date: 20180321
  Serious: Yes (Hospitalization)
  Sender: FDA-Public Use
  Company Number: CN-ABBVIE-17P-035-2184113-00

PATIENT
  Age: 41 Year
  Sex: Female

DRUGS (1)
  1. DEPAKINE CHRONO [Suspect]
     Active Substance: VALPROATE SODIUM
     Indication: PERINATAL DEPRESSION
     Route: 048
     Dates: start: 20170804, end: 20171003

REACTIONS (2)
  - Erythema [Recovered/Resolved]
  - Papule [Recovering/Resolving]

NARRATIVE: CASE EVENT DATE: 20171003
